FAERS Safety Report 6236595-5 (Version None)
Quarter: 2009Q2

REPORT INFORMATION
  Report Type: 
  Country: None (occurrence: None)
  Receive Date: 20090619
  Receipt Date: 20090610
  Transmission Date: 20091009
  Serious: Yes (Other)
  Sender: FDA-Public Use
  Company Number: JP-JNJFOC-20090604261

PATIENT
  Age: 65 Year
  Sex: Female

DRUGS (1)
  1. ITRIZOLE [Suspect]
     Indication: DRUG USE FOR UNKNOWN INDICATION
     Route: 048

REACTIONS (5)
  - ANAPHYLACTOID REACTION [None]
  - COLD SWEAT [None]
  - DYSPNOEA [None]
  - HEADACHE [None]
  - PALPITATIONS [None]
